FAERS Safety Report 4842059-3 (Version None)
Quarter: 2005Q4

REPORT INFORMATION
  Report Type: 
  Country: None (occurrence: None)
  Receive Date: 20051130
  Receipt Date: 20051118
  Transmission Date: 20060501
  Serious: Yes (Other)
  Sender: FDA-Public Use
  Company Number: JP-BRISTOL-MYERS SQUIBB COMPANY-13188164

PATIENT
  Age: 19 Year
  Sex: Male

DRUGS (3)
  1. MAXIPIME [Suspect]
     Indication: PERITONSILLAR ABSCESS
     Route: 041
     Dates: start: 20050920, end: 20050920
  2. TRANSAMIN [Concomitant]
     Route: 048
  3. LOXONIN [Concomitant]
     Route: 048

REACTIONS (1)
  - DYSPNOEA [None]
